FAERS Safety Report 8601343-8 (Version None)
Quarter: 2012Q3

REPORT INFORMATION
  Report Type: 
  Country: None (occurrence: None)
  Receive Date: 20120817
  Receipt Date: 20120815
  Transmission Date: 20120928
  Serious: Yes (Death)
  Sender: FDA-Public Use
  Company Number: DE-SANOFI-AVENTIS-2012SA056212

PATIENT
  Age: 55 Year
  Sex: Male

DRUGS (12)
  1. ZOFRAN [Concomitant]
  2. OXALIPLATIN [Suspect]
     Route: 041
     Dates: start: 20120726, end: 20120726
  3. FLUOROURACIL [Suspect]
     Route: 041
     Dates: start: 20120726, end: 20120726
  4. LEUCOVORIN CALCIUM [Suspect]
     Route: 042
     Dates: start: 20120726, end: 20120726
  5. DOCETAXEL [Suspect]
     Route: 041
     Dates: start: 20120726, end: 20120726
  6. ENOXAPARIN SODIUM [Concomitant]
  7. DEXAMETHASONE [Concomitant]
  8. LISINOPRIL [Concomitant]
  9. METOCLOPRAMIDE [Concomitant]
  10. DIMENHYDRINATE [Concomitant]
  11. LOPERAMIDE [Concomitant]
  12. TEMAZEPAM [Concomitant]

REACTIONS (1)
  - DEATH [None]
